FAERS Safety Report 17412469 (Version 1)
Quarter: 2020Q1

REPORT INFORMATION
  Report Type: Report from Study
  Country: US (occurrence: US)
  Receive Date: 20200213
  Receipt Date: 20200213
  Transmission Date: 20200409
  Serious: Yes (Hospitalization, Other)
  Sender: FDA-Public Use
  Company Number: US-AUROBINDO-AUR-APL-2020-007056

PATIENT

DRUGS (1)
  1. NAFCILLIN [Suspect]
     Active Substance: NAFCILLIN SODIUM
     Indication: STAPHYLOCOCCAL SEPSIS
     Dosage: 12 GRAM, ONCE A DAY
     Route: 042

REACTIONS (1)
  - Acute kidney injury [Unknown]
